FAERS Safety Report 6253781 (Version 2)
Quarter: 2014Q2

REPORT INFORMATION
  Report Type: Spontaneous
  Country: US (occurrence: US)
  Receive Date: 20061201
  Receipt Date: 20140510
  Transmission Date: 20141212
  Serious: No
  Sender: FDA-Public Use
  Company Number: 2006PV021770

PATIENT
  Age: 66 Year
  Sex: Female

DRUGS (2)
  1. BYETTA [Suspect]
     Indication: DIABETES MELLITUS
     Route: 058
  2. TRADJENTA [Concomitant]

REACTIONS (2)
  - Weight decreased [Unknown]
  - Nausea [Recovering/Resolving]
